FAERS Safety Report 4504573-X (Version None)
Quarter: 2004Q4

REPORT INFORMATION
  Report Type: 
  Country: None (occurrence: None)
  Receive Date: 20041118
  Receipt Date: 20040723
  Transmission Date: 20050328
  Serious: Yes (Life-Threatening, Hospitalization, Other)
  Sender: FDA-Public Use
  Company Number: US-NOVOPROD-238283

PATIENT
  Age: 82 Year
  Sex: Female

DRUGS (14)
  1. NOVOLOG [Suspect]
     Indication: INSULIN-REQUIRING TYPE II DIABETES MELLITUS
     Dosage: UNK, UNK
     Route: 058
  2. ASPIRINA [Concomitant]
     Dosage: 81 MG, QD
  3. MULTIVITAMIN [Concomitant]
  4. GLYBURIDE [Concomitant]
     Dosage: 5 MG EVERY MORNING
  5. TOPROL-XL [Concomitant]
     Dosage: 200 MG, QD
  6. ESTERASE [Concomitant]
     Dosage: UNK, QD
  7. NOVOLOG MIX 70/30 [Concomitant]
     Dosage: 40 UNITS MANE AND 30 UNITS NOCTE
  8. HYDROCHLOROTHIAZIDE [Concomitant]
     Dosage: 25 MG, QD
  9. DOXAZOSIN [Concomitant]
     Dosage: 2 MG, QD
  10. VALDECOXIB [Concomitant]
  11. ESTRADIOL [Concomitant]
  12. CALCIUM CITRATE [Concomitant]
  13. VITAMIN E [Concomitant]
  14. BAYER PM [Concomitant]

REACTIONS (6)
  - COMA [None]
  - DIARRHOEA [None]
  - FEELING ABNORMAL [None]
  - HYPOGLYCAEMIA [None]
  - MEDICATION ERROR [None]
  - VISION BLURRED [None]
